FAERS Safety Report 24222477 (Version 2)
Quarter: 2024Q3

REPORT INFORMATION
  Report Type: Spontaneous
  Country: MT (occurrence: MT)
  Receive Date: 20240819
  Receipt Date: 20240826
  Transmission Date: 20241016
  Serious: Yes (Death, Other)
  Sender: PFIZER
  Company Number: MT-PFIZER INC-PV202400105743

PATIENT
  Age: 72 Year
  Sex: Male
  Weight: 72 kg

DRUGS (2)
  1. RALTITREXED [Suspect]
     Active Substance: RALTITREXED
     Indication: Gastric cancer stage IV
     Dosage: UNK
  2. OXALIPLATIN [Suspect]
     Active Substance: OXALIPLATIN
     Indication: Gastric cancer stage IV
     Dosage: UNK AT A REDUCED DOSE OF 75%

REACTIONS (1)
  - Interstitial lung disease [Fatal]
